FAERS Safety Report 23948173 (Version 1)
Quarter: 2024Q2

REPORT INFORMATION
  Report Type: Spontaneous
  Country: US (occurrence: US)
  Receive Date: 20240607
  Receipt Date: 20240607
  Transmission Date: 20240715
  Serious: No
  Sender: FDA-Public Use
  Company Number: US-CELLTRION INC.-2024US012227

PATIENT

DRUGS (2)
  1. ZYMFENTRA [Suspect]
     Active Substance: INFLIXIMAB-DYYB
     Indication: Colitis ulcerative
     Dosage: 120 MG, Q2W
     Dates: start: 20240418
  2. ZYMFENTRA [Suspect]
     Active Substance: INFLIXIMAB-DYYB
     Dosage: 120 MG, Q2W; FIRST DOSE
     Dates: start: 20240516

REACTIONS (2)
  - Abdominal pain upper [Not Recovered/Not Resolved]
  - Drug ineffective [Not Recovered/Not Resolved]
